FAERS Safety Report 25056264 (Version 2)
Quarter: 2025Q1

REPORT INFORMATION
  Report Type: Spontaneous
  Country: US (occurrence: US)
  Receive Date: 20250310
  Receipt Date: 20250326
  Transmission Date: 20250409
  Serious: Yes (Death, Hospitalization)
  Sender: NOVARTIS
  Company Number: US-002147023-NVSC2025US039288

PATIENT
  Age: 67 Year
  Sex: Male

DRUGS (1)
  1. PLUVICTO [Suspect]
     Active Substance: LUTETIUM LU-177 VIPIVOTIDE TETRAXETAN
     Indication: Prostate cancer metastatic
     Route: 042
     Dates: start: 20241004, end: 20241004

REACTIONS (2)
  - Death [Fatal]
  - Haematology test abnormal [Unknown]

NARRATIVE: CASE EVENT DATE: 20250131
